FAERS Safety Report 16295948 (Version 2)
Quarter: 2019Q2

REPORT INFORMATION
  Report Type: Spontaneous
  Country: US (occurrence: US)
  Receive Date: 20190510
  Receipt Date: 20190618
  Transmission Date: 20190711
  Serious: No
  Sender: FDA-Public Use
  Company Number: US-BAUSCH-BL-2019-012473

PATIENT
  Age: 78 Year
  Sex: Female

DRUGS (2)
  1. LATANOPROST. [Suspect]
     Active Substance: LATANOPROST
     Indication: GLAUCOMA
     Dosage: ABOUT A MONTH AGO, FIRST BOTTLE
     Route: 047
     Dates: start: 201903, end: 2019
  2. LATANOPROST. [Suspect]
     Active Substance: LATANOPROST
     Dosage: SECOND BOTTLE, STARTED TWO DAYS PRIOR TO THE DATE OF INITIAL REPORT
     Route: 047
     Dates: start: 201904, end: 201904

REACTIONS (3)
  - Eye irritation [Recovered/Resolved]
  - Product quality issue [Unknown]
  - Lacrimation increased [Recovered/Resolved]

NARRATIVE: CASE EVENT DATE: 201904
